FAERS Safety Report 16434286 (Version 3)
Quarter: 2019Q3

REPORT INFORMATION
  Report Type: Report from Study
  Country: NL (occurrence: NL)
  Receive Date: 20190614
  Receipt Date: 20190706
  Transmission Date: 20191004
  Serious: Yes (Hospitalization, Other)
  Sender: FDA-Public Use
  Company Number: NL-AMGEN-NLDSL2019075380

PATIENT
  Sex: Male

DRUGS (1)
  1. ARANESP [Suspect]
     Active Substance: DARBEPOETIN ALFA
     Indication: NEPHROGENIC ANAEMIA
     Dosage: 20 MICROGRAM, QWK
     Route: 058

REACTIONS (4)
  - Fatigue [Unknown]
  - Dyspnoea [Recovered/Resolved]
  - Terminal state [Unknown]
  - Malaise [Unknown]
